FAERS Safety Report 16617755 (Version 1)
Quarter: 2019Q3

REPORT INFORMATION
  Report Type: Spontaneous
  Country: US (occurrence: US)
  Receive Date: 20190611
  Receipt Date: 20190611
  Transmission Date: 20191004
  Serious: No
  Sender: FDA-Public Use
  Company Number: None

PATIENT
  Age: 55 Year
  Sex: Female

DRUGS (1)
  1. ACTHAR [Suspect]
     Active Substance: CORTICOTROPIN
     Dosage: OTHER STRENGTH BD 1ML 25GX58
     Route: 058
     Dates: start: 201803

REACTIONS (1)
  - Peripheral swelling [None]

NARRATIVE: CASE EVENT DATE: 20190513
